FAERS Safety Report 6357574-3 (Version None)
Quarter: 2009Q3

REPORT INFORMATION
  Report Type: 
  Country: None (occurrence: None)
  Receive Date: 20090916
  Receipt Date: 20090907
  Transmission Date: 20100115
  Serious: Yes (Hospitalization)
  Sender: FDA-Public Use
  Company Number: PHHO2009DE10938

PATIENT
  Sex: Female
  Weight: 74 kg

DRUGS (12)
  1. SANDIMMUNE [Suspect]
     Indication: RENAL TRANSPLANT
     Dosage: 250 MG/DAY
     Route: 048
  2. MYFORTIC [Suspect]
     Indication: RENAL TRANSPLANT
     Dosage: 36
  3. NO TREATMENT RECEIVED NOMED [Suspect]
     Indication: RENAL TRANSPLANT
  4. SULFAMETHOXAZOLE AND TRIMETHOPRIM [Concomitant]
     Indication: PROPHYLAXIS
  5. AMPHOTERICIN B [Concomitant]
     Indication: PROPHYLAXIS
     Dosage: 1 ML, QID
  6. VALCYTE [Concomitant]
     Indication: PROPHYLAXIS
     Dosage: 450 MG, QD
  7. METOPROLOL TARTRATE [Concomitant]
     Indication: HYPERTENSION
  8. PANTOPRAZOLE SODIUM [Concomitant]
     Indication: PROPHYLAXIS
     Dosage: 40 MG, BID
  9. PRAVASTATIN [Concomitant]
     Indication: PROPHYLAXIS
     Dosage: 40 MG, BID
  10. HYDROCHLOROTHIAZIDE [Concomitant]
     Indication: HYPERTENSION
     Dosage: 12.5 MG, BID
  11. TORASEMIDE [Concomitant]
     Indication: HYPERTENSION
     Dosage: 10 ML, BID
  12. ARANESP [Concomitant]
     Dosage: 1 DF, QW
     Dates: end: 20090730

REACTIONS (1)
  - INFECTION [None]
